FAERS Safety Report 19115954 (Version 1)
Quarter: 2021Q2

REPORT INFORMATION
  Report Type: Spontaneous
  Country: DE (occurrence: DE)
  Receive Date: 20210409
  Receipt Date: 20210409
  Transmission Date: 20210717
  Serious: Yes (Hospitalization, Other)
  Sender: FDA-Public Use
  Company Number: DE-BAYER-2021-119925

PATIENT
  Age: 67 Year
  Sex: Male

DRUGS (1)
  1. INTERFERON BETA ? 1B [Suspect]
     Active Substance: INTERFERON BETA-1B
     Indication: PRODUCT USED FOR UNKNOWN INDICATION
     Dosage: 1.0 ML, QOD (DOSE: 250 ?G/ML)
     Route: 065

REACTIONS (2)
  - Pulmonary oedema [None]
  - Cardiac failure [None]

NARRATIVE: CASE EVENT DATE: 20210401
